FAERS Safety Report 6963149-5 (Version None)
Quarter: 2010Q3

REPORT INFORMATION
  Report Type: 
  Country: None (occurrence: None)
  Receive Date: 20100902
  Receipt Date: 20100823
  Transmission Date: 20110219
  Serious: Yes (Hospitalization)
  Sender: FDA-Public Use
  Company Number: GXKR2010IT09523

PATIENT
  Sex: Male

DRUGS (1)
  1. CEFUROXIME [Suspect]
     Route: 065

REACTIONS (3)
  - ARTHRITIS [None]
  - ERYTHEMA [None]
  - LYMPHADENOPATHY [None]
